FAERS Safety Report 8814750 (Version 1)
Quarter: 2012Q4

REPORT INFORMATION
  Report Type: 
  Country: US (occurrence: US)
  Receive Date: 20120928
  Receipt Date: 20120928
  Transmission Date: 20130627
  Serious: Yes (Hospitalization)
  Sender: FDA-Public Use
  Company Number: US-CELGENEUS-163-21880-12083436

PATIENT
  Age: 86 Year
  Sex: Female

DRUGS (11)
  1. REVLIMID [Suspect]
     Indication: MULTIPLE MYELOMA
     Dosage: 10 Milligram
     Route: 048
     Dates: start: 20120613, end: 20120815
  2. IMURAN [Concomitant]
     Indication: ULCERATIVE COLITIS
     Route: 065
  3. PENTASA [Concomitant]
     Indication: ULCERATIVE COLITIS
     Dosage: 2500 Milligram
     Route: 065
  4. ZANTAC [Concomitant]
     Indication: PUD
     Dosage: 600 Milligram
     Route: 065
  5. ZOVIRAX [Concomitant]
     Indication: PUD
     Dosage: 400 Milligram
     Route: 065
  6. MICROZIDE [Concomitant]
     Indication: HYPERTENSION
     Dosage: 12.5 Milligram
     Route: 065
  7. PLAVIX [Concomitant]
     Indication: HYPERTENSION
     Dosage: 75 Milligram
     Route: 065
  8. ATENOLOL [Concomitant]
     Indication: HYPERTENSION
     Dosage: 50 Milligram
     Route: 065
  9. ZOCOR [Concomitant]
     Indication: DRUG USE FOR UNKNOWN INDICATION
     Dosage: 20 Milligram
     Route: 065
  10. DECADRON [Concomitant]
     Indication: DRUG USE FOR UNKNOWN INDICATION
     Dosage: 20 Milligram
     Route: 065
  11. MSIR [Concomitant]
     Indication: PAIN
     Dosage: 60 Milligram
     Route: 065

REACTIONS (1)
  - Osteolysis [Recovering/Resolving]
